FAERS Safety Report 14560033 (Version 1)
Quarter: 2018Q1

REPORT INFORMATION
  Report Type: Report from Study
  Country: None (occurrence: US)
  Receive Date: 20180221
  Receipt Date: 20180221
  Transmission Date: 20180509
  Serious: Yes (Other)
  Sender: FDA-Public Use
  Company Number: US-ABBVIE-18K-163-2259505-00

PATIENT
  Age: 63 Year
  Sex: Female

DRUGS (1)
  1. HUMIRA [Suspect]
     Active Substance: ADALIMUMAB
     Indication: RHEUMATOID ARTHRITIS
     Route: 058

REACTIONS (6)
  - Carpal tunnel syndrome [Unknown]
  - Laceration [Unknown]
  - Nerve injury [Recovering/Resolving]
  - Peripheral swelling [Not Recovered/Not Resolved]
  - Colitis ulcerative [Unknown]
  - Trigger finger [Unknown]

NARRATIVE: CASE EVENT DATE: 2012
